FAERS Safety Report 9105617 (Version 3)
Quarter: 2013Q2

REPORT INFORMATION
  Report Type: Spontaneous
  Country: ES (occurrence: ES)
  Receive Date: 20130220
  Receipt Date: 20130417
  Transmission Date: 20140414
  Serious: Yes (Death, Hospitalization, Other)
  Sender: FDA-Public Use
  Company Number: ES-GENZYME-THYM-1003646

PATIENT
  Age: 50 Year
  Sex: Female

DRUGS (6)
  1. THYMOGLOBULINE [Suspect]
     Indication: BONE MARROW CONDITIONING REGIMEN
     Dosage: 2 MG/KG, QD
     Route: 042
     Dates: start: 20090514, end: 20090516
  2. FLUDARA [Suspect]
     Indication: BONE MARROW CONDITIONING REGIMEN
     Dosage: 50 MG/M2, QD
     Route: 042
     Dates: start: 20090514, end: 20090516
  3. THIO-TEPA [Concomitant]
     Indication: BONE MARROW CONDITIONING REGIMEN
     Dosage: 5 MG/KG, QD
     Route: 042
     Dates: start: 20090512, end: 20090513
  4. BUSULFAN [Concomitant]
     Indication: BONE MARROW CONDITIONING REGIMEN
     Dosage: 3.2 MG/KG, QD
     Route: 042
     Dates: start: 20090514, end: 20090516
  5. CYCLOSPORIN [Concomitant]
     Indication: PROPHYLAXIS AGAINST TRANSPLANT REJECTION
     Dosage: UNK
     Route: 048
     Dates: start: 20090518, end: 20090619
  6. MYCOPHENOLATE MOFETIL [Concomitant]
     Indication: PROPHYLAXIS AGAINST TRANSPLANT REJECTION
     Dosage: UNK
     Route: 048
     Dates: start: 20090518, end: 20090619

REACTIONS (7)
  - Cardiac failure [Fatal]
  - Thrombotic thrombocytopenic purpura [Unknown]
  - Acute myeloid leukaemia [Fatal]
  - Post transplant lymphoproliferative disorder [Fatal]
  - Acute graft versus host disease in skin [Unknown]
  - Acute graft versus host disease in intestine [Unknown]
  - Cytomegalovirus infection [Unknown]
